FAERS Safety Report 26078145 (Version 1)
Quarter: 2025Q4

REPORT INFORMATION
  Report Type: Spontaneous
  Country: US (occurrence: US)
  Receive Date: 20251122
  Receipt Date: 20251122
  Transmission Date: 20260117
  Serious: No
  Sender: ZYDUS PHARM
  Company Number: US-CADILA HEALTHCARE LIMITED-US-ZYDUS-130494

PATIENT

DRUGS (1)
  1. LENALIDOMIDE [Suspect]
     Active Substance: LENALIDOMIDE
     Indication: Plasma cell myeloma
     Dosage: 20 MILLIGRAM 21/8
     Route: 065
     Dates: start: 20250829

REACTIONS (2)
  - Gastrointestinal disorder [Unknown]
  - Product substitution issue [Recovered/Resolved]

NARRATIVE: CASE EVENT DATE: 20250101
